FAERS Safety Report 5461013-4 (Version None)
Quarter: 2007Q3

REPORT INFORMATION
  Report Type: 
  Country: None (occurrence: None)
  Receive Date: 20070822
  Receipt Date: 20061209
  Transmission Date: 20080115
  Serious: Yes (Other)
  Sender: FDA-Public Use
  Company Number: 2006153094

PATIENT

DRUGS (2)
  1. AMLODIPINE [Suspect]
  2. ATORVASTATIN CALCIUM [Suspect]

REACTIONS (1)
  - ANGIOEDEMA [None]
